FAERS Safety Report 10404451 (Version 1)
Quarter: 2014Q2

REPORT INFORMATION
  Report Type: Spontaneous
  Country: US (occurrence: None)
  Receive Date: 20140425
  Receipt Date: 20140425
  Transmission Date: 20141212
  Serious: No
  Sender: FDA-Public Use
  Company Number: 1301339

PATIENT
  Age: 54 Year
  Sex: Male
  Weight: 120.2 kg

DRUGS (2)
  1. ZELBORAF (VEMURAFENIB) [Suspect]
     Indication: MALIGNANT MELANOMA
     Route: 048
     Dates: start: 20130327
  2. METOPROLOL COMP (HYDROCHLOROTHIAZIDE, METOPROLOL TARTRATE) [Concomitant]

REACTIONS (1)
  - Rash generalised [None]
